FAERS Safety Report 15696481 (Version 1)
Quarter: 2018Q4

REPORT INFORMATION
  Report Type: Report from Study
  Country: JP (occurrence: JP)
  Receive Date: 20181206
  Receipt Date: 20181206
  Transmission Date: 20190205
  Serious: Yes (Life-Threatening, Hospitalization, Other)
  Sender: FDA-Public Use
  Company Number: PHJP2015JP010625

PATIENT
  Age: 5 Month
  Sex: Male
  Weight: 4 kg

DRUGS (6)
  1. VIGABATRIN. [Concomitant]
     Active Substance: VIGABATRIN
     Indication: INFANTILE SPASMS
     Dosage: UNK
     Route: 065
  2. AFINITOR [Suspect]
     Active Substance: EVEROLIMUS
     Indication: ASTROCYTOMA, LOW GRADE
     Dosage: 1.25 MG, QOD
     Route: 048
     Dates: start: 20141211, end: 20150714
  3. VALPROATE [Concomitant]
     Active Substance: VALPROIC ACID
     Indication: INFANTILE SPASMS
     Dosage: UNK
     Route: 065
  4. AFINITOR [Suspect]
     Active Substance: EVEROLIMUS
     Dosage: 0.63 MG, QD
     Route: 048
  5. AFINITOR [Suspect]
     Active Substance: EVEROLIMUS
     Dosage: 0.83 MG, QD
     Route: 048
  6. AFINITOR [Suspect]
     Active Substance: EVEROLIMUS
     Dosage: 1.25 MG, UNK
     Route: 048
     Dates: start: 20150715, end: 20160220

REACTIONS (11)
  - Hyperlipidaemia [Recovered/Resolved]
  - Stomatitis [Recovered/Resolved]
  - Disseminated intravascular coagulation [Recovered/Resolved]
  - Human herpesvirus 6 infection [Recovered/Resolved]
  - Product use issue [Unknown]
  - Renal impairment [Recovered/Resolved]
  - Febrile convulsion [Recovered/Resolved]
  - Febrile convulsion [Recovered/Resolved]
  - Encephalopathy [Recovered/Resolved with Sequelae]
  - Human herpesvirus 7 infection [Recovered/Resolved with Sequelae]
  - Hepatic function abnormal [Recovered/Resolved]

NARRATIVE: CASE EVENT DATE: 20150416
